FAERS Safety Report 6779032-4 (Version None)
Quarter: 2010Q2

REPORT INFORMATION
  Report Type: 
  Country: None (occurrence: None)
  Receive Date: 20100618
  Receipt Date: 20100616
  Transmission Date: 20101027
  Serious: Yes (Life-Threatening, Hospitalization)
  Sender: FDA-Public Use
  Company Number: DE-JNJFOC-20100605004

PATIENT
  Age: 71 Year
  Sex: Male

DRUGS (1)
  1. TAVANIC [Suspect]
     Indication: DRUG USE FOR UNKNOWN INDICATION
     Route: 048

REACTIONS (4)
  - APHASIA [None]
  - LIP SWELLING [None]
  - OROPHARYNGEAL SWELLING [None]
  - RASH PUSTULAR [None]
